FAERS Safety Report 8390243-7 (Version None)
Quarter: 2012Q2

REPORT INFORMATION
  Report Type: 
  Country: None (occurrence: None)
  Receive Date: 20120529
  Receipt Date: 20120523
  Transmission Date: 20120825
  Serious: Yes (Other)
  Sender: FDA-Public Use
  Company Number: BR-PFIZER INC-2012125723

PATIENT
  Age: 33 Year
  Sex: Male
  Weight: 72 kg

DRUGS (6)
  1. DONAREN RETARD [Concomitant]
     Indication: SLEEP DISORDER
     Dosage: 1/3 OF 100MG, AT NIGHT
     Dates: start: 20040101
  2. OXCARBAZEPINE [Concomitant]
     Indication: DEPRESSION
     Dosage: HALF TABLET OF 10MG, AT NIGHT
     Dates: start: 20040101
  3. ZYPREXA [Concomitant]
     Indication: BIPOLAR DISORDER
     Dosage: HALF TABLET OF 10 MG AT NIGHT
     Dates: start: 20040101
  4. CLONAZEPAM [Concomitant]
     Indication: ANXIETY
     Dosage: 2 MG, AT NIGHT
     Dates: start: 20040101
  5. VARENICLINE TARTRATE [Suspect]
     Dosage: UNSPECIFIED DOSAGE, 2X/DAY
     Route: 048
     Dates: start: 20120101, end: 20120101
  6. VARENICLINE TARTRATE [Suspect]
     Indication: SMOKING CESSATION THERAPY
     Dosage: UNK
     Route: 048
     Dates: start: 20120201, end: 20120101

REACTIONS (3)
  - LABYRINTHITIS [None]
  - HEADACHE [None]
  - DECREASED APPETITE [None]
